FAERS Safety Report 7874935-1 (Version None)
Quarter: 2011Q4

REPORT INFORMATION
  Report Type: 
  Country: None (occurrence: None)
  Receive Date: 20111031
  Receipt Date: 20111028
  Transmission Date: 20120403
  Serious: Yes (Death)
  Sender: FDA-Public Use
  Company Number: CH-JNJFOC-20111010412

PATIENT
  Age: 18 Year
  Sex: Female

DRUGS (6)
  1. DIAZEPAM [Concomitant]
     Route: 065
  2. HALOPERIDOL [Suspect]
     Indication: STRESS
     Route: 065
  3. IMIPRAMINE [Concomitant]
     Route: 065
  4. ACETAMINOPHEN [Concomitant]
     Route: 048
  5. HALOPERIDOL [Suspect]
     Indication: AGITATION
     Route: 065
  6. FLURAZEPAM [Concomitant]
     Route: 065

REACTIONS (1)
  - CARDIAC ARREST [None]
